FAERS Safety Report 9648617 (Version 1)
Quarter: 2013Q4

REPORT INFORMATION
  Report Type: Spontaneous
  Country: US (occurrence: None)
  Receive Date: 20131025
  Receipt Date: 20131025
  Transmission Date: 20140711
  Serious: Yes (Disabling)
  Sender: FDA-Public Use
  Company Number: None

PATIENT
  Age: 62 Year
  Sex: Male
  Weight: 95.26 kg

DRUGS (5)
  1. CIALIS (TADALAFIL) [Suspect]
     Indication: RADICAL PROSTATECTOMY
     Route: 048
     Dates: start: 20130222, end: 20130520
  2. CIALIS (TADALAFIL) [Suspect]
     Indication: PROSTATE CANCER
     Route: 048
     Dates: start: 20130222, end: 20130520
  3. HCTZ [Concomitant]
  4. KEPPRA [Concomitant]
  5. PRILOSEC [Concomitant]

REACTIONS (2)
  - Vision blurred [None]
  - Eye pain [None]
